FAERS Safety Report 10608257 (Version 3)
Quarter: 2015Q1

REPORT INFORMATION
  Report Type: Spontaneous
  Country: US (occurrence: US)
  Receive Date: 20141125
  Receipt Date: 20150213
  Transmission Date: 20150720
  Serious: Yes (Other)
  Sender: FDA-Public Use
  Company Number: US-PERRIGO-14US011382

PATIENT
  Sex: Male
  Weight: 83.9 kg

DRUGS (5)
  1. ACETAMINOPHEN 500MG 484 [Suspect]
     Active Substance: ACETAMINOPHEN
     Indication: PAIN
  2. LIPID MODIFYING AGENTS [Concomitant]
     Indication: PROPHYLAXIS
     Dosage: UNK, UNK
     Route: 065
     Dates: start: 2004
  3. ACETAMINOPHEN 500MG 484 [Suspect]
     Active Substance: ACETAMINOPHEN
     Indication: HEADACHE
     Dosage: 500 TO 1000 MG, 1 TO 3 TIMES DAILY AS NEEDED
     Route: 048
     Dates: start: 2004, end: 201410
  4. ANTITHROMBOTIC AGENTS [Concomitant]
     Active Substance: UNSPECIFIED INGREDIENT
     Indication: ANTICOAGULANT THERAPY
     Dosage: UNK, UNK
     Route: 065
     Dates: start: 2004
  5. ASPIRIN. [Suspect]
     Active Substance: ASPIRIN
     Indication: ACCIDENTAL EXPOSURE TO PRODUCT
     Dosage: UNK, UNK
     Route: 048
     Dates: start: 2014, end: 201410

REACTIONS (7)
  - Myalgia [Not Recovered/Not Resolved]
  - Abdominal pain upper [Not Recovered/Not Resolved]
  - Accidental exposure to product [Recovered/Resolved]
  - Tendon rupture [Not Recovered/Not Resolved]
  - Underdose [Recovered/Resolved]
  - Meniscus injury [Not Recovered/Not Resolved]
  - Diarrhoea [Not Recovered/Not Resolved]

NARRATIVE: CASE EVENT DATE: 2004
